FAERS Safety Report 7944907-7 (Version None)
Quarter: 2011Q4

REPORT INFORMATION
  Report Type: 
  Country: None (occurrence: None)
  Receive Date: 20111122
  Receipt Date: 20111115
  Transmission Date: 20120403
  Serious: Yes (Hospitalization, Other)
  Sender: FDA-Public Use
  Company Number: CLOF-10774

PATIENT
  Age: 65 Year
  Sex: Female

DRUGS (13)
  1. SIMVASTATIN [Concomitant]
  2. EVOLTRA (CLOFARABINE) SOLUTION FOR INFUSION [Suspect]
     Indication: ACUTE MYELOID LEUKAEMIA
     Dosage: 35 MG, QD, INTRAVENOUS
     Route: 042
     Dates: start: 20071017, end: 20071019
  3. BENDROFLUAZIDE (BENDROFLUMETHIAZIDE) [Concomitant]
  4. CO-AMILOFRUSE (AMILORIDE HYDROCHLORIDE, FUROSEMIDE) [Concomitant]
  5. BISOPROLOL FUMARATE [Concomitant]
  6. CYCLIZINE [Concomitant]
  7. FLUCONAZOLE [Concomitant]
  8. TOLTERODINE TARTRATE [Concomitant]
  9. LEVOTHYROXINE SODIUM [Concomitant]
  10. AMLODIPINE (AMLODIPINE MESILATE) [Concomitant]
  11. TRAMADOL HCL [Concomitant]
  12. LANSOPRAZOLE [Concomitant]
  13. FLUCLOXACILLIN (FLUCLOXACILLIN SODIUM) [Concomitant]

REACTIONS (9)
  - RED BLOOD CELLS URINE POSITIVE [None]
  - LEFT VENTRICULAR HYPERTROPHY [None]
  - RENAL IMPAIRMENT [None]
  - FLUID OVERLOAD [None]
  - HYPOKALAEMIA [None]
  - CARDIAC FAILURE CONGESTIVE [None]
  - BLOOD CREATININE INCREASED [None]
  - WHITE BLOOD CELLS URINE POSITIVE [None]
  - BLOOD UREA INCREASED [None]
